FAERS Safety Report 8055796-7 (Version None)
Quarter: 2012Q1

REPORT INFORMATION
  Report Type: 
  Country: None (occurrence: None)
  Receive Date: 20120119
  Receipt Date: 20120111
  Transmission Date: 20120608
  Serious: Yes (Other)
  Sender: FDA-Public Use
  Company Number: US-PURDUE-USA-2010-0063395

PATIENT
  Sex: Male

DRUGS (1)
  1. OXYCONTIN [Suspect]
     Indication: ANALGESIC THERAPY
     Dosage: 40 MG, TID
     Route: 048
     Dates: start: 20100813, end: 20110401

REACTIONS (11)
  - POST PROCEDURAL COMPLICATION [None]
  - INFECTION [None]
  - ABDOMINAL DISCOMFORT [None]
  - INADEQUATE ANALGESIA [None]
  - FAECES HARD [None]
  - CONSTIPATION [None]
  - FOREIGN BODY [None]
  - SURGERY [None]
  - ABNORMAL FAECES [None]
  - PRODUCT SOLUBILITY ABNORMAL [None]
  - RECTAL TENESMUS [None]
